FAERS Safety Report 22366778 (Version 1)
Quarter: 2023Q2

REPORT INFORMATION
  Report Type: Spontaneous
  Country: AR (occurrence: AR)
  Receive Date: 20230525
  Receipt Date: 20230525
  Transmission Date: 20230721
  Serious: Yes (Other)
  Sender: FDA-Public Use
  Company Number: AR-PFIZER INC-PV202300090134

PATIENT
  Age: 11 Year
  Sex: Male

DRUGS (1)
  1. GENOTROPIN [Suspect]
     Active Substance: SOMATROPIN
     Dosage: 0.6 TO 1 MG 6 TIMES A WEEK
     Dates: start: 20180915

REACTIONS (3)
  - Hepatitis [Unknown]
  - Hepatic steatosis [Unknown]
  - Gallbladder disorder [Unknown]

NARRATIVE: CASE EVENT DATE: 20230101
